FAERS Safety Report 15021882 (Version 1)
Quarter: 2018Q2

REPORT INFORMATION
  Report Type: Spontaneous
  Country: US (occurrence: US)
  Receive Date: 20180524
  Receipt Date: 20180524
  Transmission Date: 20180711
  Serious: No
  Sender: FDA-Public Use
  Company Number: None

PATIENT
  Sex: Female
  Weight: 77.56 kg

DRUGS (3)
  1. ENBREL [Suspect]
     Active Substance: ETANERCEPT
  2. ACTHAR [Concomitant]
     Active Substance: CORTICOTROPIN
  3. LEFLUNOMIDE. [Suspect]
     Active Substance: LEFLUNOMIDE
     Indication: RHEUMATOID ARTHRITIS

REACTIONS (2)
  - Pruritus [None]
  - Urticaria [None]
